FAERS Safety Report 14327298 (Version 4)
Quarter: 2018Q4

REPORT INFORMATION
  Report Type: Spontaneous
  Country: US (occurrence: US)
  Receive Date: 20171227
  Receipt Date: 20181121
  Transmission Date: 20190204
  Serious: No
  Sender: FDA-Public Use
  Company Number: US-PFIZER INC-2017436154

PATIENT
  Age: 65 Year
  Sex: Female
  Weight: 85.26 kg

DRUGS (15)
  1. DOCETAXEL. [Suspect]
     Active Substance: DOCETAXEL
     Dosage: UNK, EVERY 3 WEEKS, SIX CYCLES
     Dates: start: 20131119, end: 20140401
  2. B6 [Concomitant]
     Active Substance: PYRIDOXINE HYDROCHLORIDE
     Dosage: UNK
  3. TAXOTERE [Concomitant]
     Active Substance: DOCETAXEL
     Indication: CHEMOTHERAPY
     Dosage: UNK, 6 CYCLES
     Dates: start: 2013, end: 2014
  4. EFUDEX [Concomitant]
     Active Substance: FLUOROURACIL
     Indication: CHEMOTHERAPY
     Dosage: UNK
  5. TREXALL [Concomitant]
     Active Substance: METHOTREXATE SODIUM
     Indication: CHEMOTHERAPY
     Dosage: UNK
  6. RASUVO [Concomitant]
     Active Substance: METHOTREXATE SODIUM
     Indication: CHEMOTHERAPY
     Dosage: UNK
  7. HERCEPTIN [Concomitant]
     Active Substance: TRASTUZUMAB
     Dosage: UNK
     Dates: start: 2013, end: 2014
  8. NEOSAR [Concomitant]
     Active Substance: CYCLOPHOSPHAMIDE
     Indication: CHEMOTHERAPY
     Dosage: UNK
  9. DOCETAXEL SANDOZ [Suspect]
     Active Substance: DOCETAXEL
     Indication: BREAST CANCER FEMALE
  10. PARAPLATIN [Concomitant]
     Active Substance: CARBOPLATIN
     Indication: CHEMOTHERAPY
     Dosage: UNK
  11. CARBOPLATIN. [Concomitant]
     Active Substance: CARBOPLATIN
     Indication: CHEMOTHERAPY
     Dosage: UNK, 6 CYCLES
     Dates: start: 2013, end: 2014
  12. IRON SUPPLEMENTS [Concomitant]
     Active Substance: IRON
     Dosage: UNK
  13. DOCETAXEL SANDOZ [Suspect]
     Active Substance: DOCETAXEL
     Indication: CHEMOTHERAPY
  14. HERCEPTIN [Concomitant]
     Active Substance: TRASTUZUMAB
     Indication: CHEMOTHERAPY
     Dosage: UNK, 6 CYCLES
     Dates: start: 2013, end: 2014
  15. PERTUZUMAB. [Concomitant]
     Active Substance: PERTUZUMAB
     Indication: CHEMOTHERAPY
     Dosage: UNK, 6 CYCLES
     Dates: start: 2013, end: 2014

REACTIONS (5)
  - Alopecia [Not Recovered/Not Resolved]
  - Hair texture abnormal [Not Recovered/Not Resolved]
  - Hair colour changes [Not Recovered/Not Resolved]
  - Madarosis [Not Recovered/Not Resolved]
  - Hair disorder [Not Recovered/Not Resolved]

NARRATIVE: CASE EVENT DATE: 20141001
